FAERS Safety Report 10321545 (Version 2)
Quarter: 2015Q1

REPORT INFORMATION
  Report Type: Other
  Country: US (occurrence: US)
  Receive Date: 20140719
  Receipt Date: 20150210
  Transmission Date: 20150720
  Serious: Yes (Hospitalization, Other)
  Sender: FDA-Public Use
  Company Number: US-GSKPPD-2014GSK042312

PATIENT
  Age: 84 Year
  Sex: Male

DRUGS (7)
  1. CLONIDINE. [Concomitant]
     Active Substance: CLONIDINE
  2. DOXAZOSINE [Concomitant]
     Active Substance: DOXAZOSIN MESYLATE
  3. NORVASC [Concomitant]
     Active Substance: AMLODIPINE BESYLATE
  4. LISINOPRIL. [Concomitant]
     Active Substance: LISINOPRIL
  5. COREG [Concomitant]
     Active Substance: CARVEDILOL
     Dates: end: 201102
  6. AVANDIA [Suspect]
     Active Substance: ROSIGLITAZONE MALEATE
     Indication: DIABETES MELLITUS
     Dosage: DATES OF AVANDIA USE COULD NOT BE CONFIRMED IN RECORDS REVIEWED.
     Route: 048
  7. LASIX [Concomitant]
     Active Substance: FUROSEMIDE
     Dates: end: 201102

REACTIONS (2)
  - Cardiac failure congestive [Unknown]
  - Basal ganglia infarction [Recovered/Resolved]

NARRATIVE: CASE EVENT DATE: 20110216
